FAERS Safety Report 7655465-9 (Version None)
Quarter: 2011Q3

REPORT INFORMATION
  Report Type: 
  Country: None (occurrence: None)
  Receive Date: 20110804
  Receipt Date: 20110802
  Transmission Date: 20111222
  Serious: Yes (Hospitalization)
  Sender: FDA-Public Use
  Company Number: FR-SANOFI-AVENTIS-2011SA049356

PATIENT
  Age: 85 Year
  Sex: Female

DRUGS (9)
  1. BETAHISTINE DIHYDROCHLORIDE [Concomitant]
     Dates: end: 20101224
  2. PREVISCAN [Concomitant]
  3. ALENDRONIC ACID [Concomitant]
  4. NICARDIPINE HCL [Concomitant]
     Dates: end: 20101224
  5. DIACEREIN [Concomitant]
     Dates: end: 20101224
  6. AMIODARONE HCL [Concomitant]
  7. FORLAX [Concomitant]
  8. STRESAM [Concomitant]
     Dates: end: 20101224
  9. INDAPAMIDE [Suspect]
     Route: 048
     Dates: end: 20101208

REACTIONS (8)
  - DECREASED APPETITE [None]
  - BALANCE DISORDER [None]
  - GENERAL PHYSICAL HEALTH DETERIORATION [None]
  - MOVEMENT DISORDER [None]
  - FALL [None]
  - HYPONATRAEMIA [None]
  - HYPOKALAEMIA [None]
  - ASTHENIA [None]
